FAERS Safety Report 9468225 (Version 1)
Quarter: 2013Q3

REPORT INFORMATION
  Report Type: Spontaneous
  Country: SZ (occurrence: None)
  Receive Date: 20130816
  Receipt Date: 20130816
  Transmission Date: 20140515
  Serious: Yes (Death)
  Sender: FDA-Public Use
  Company Number: 2013P1017332

PATIENT
  Age: 25 Year
  Sex: Female

DRUGS (7)
  1. CHLOROQUINE [Suspect]
     Route: 048
  2. DIAZEPAM [Suspect]
     Route: 048
  3. LORAZEPAM [Concomitant]
  4. PASPERTIN (METOCLORAMIDE) [Concomitant]
  5. OLAZAPINE [Concomitant]
  6. TRIMIPRAMINE [Concomitant]
  7. PAROXETINE [Concomitant]

REACTIONS (5)
  - Completed suicide [None]
  - Cardiac disorder [None]
  - Pulmonary congestion [None]
  - Flatulence [None]
  - Toxicity to various agents [None]
